FAERS Safety Report 8545524-0 (Version None)
Quarter: 2012Q3

REPORT INFORMATION
  Report Type: 
  Country: None (occurrence: None)
  Receive Date: 20120727
  Receipt Date: 20111028
  Transmission Date: 20120928
  Serious: No
  Sender: FDA-Public Use
  Company Number: US-ASTRAZENECA-2011SE65649

PATIENT
  Sex: Female

DRUGS (4)
  1. KLONOPIN [Concomitant]
  2. SEROQUEL XR [Suspect]
     Dosage: HALF TABLET, 150 MG
     Route: 048
  3. ZOLOFT [Concomitant]
  4. SEROQUEL XR [Suspect]
     Route: 048

REACTIONS (3)
  - CIRCUMSTANCE OR INFORMATION CAPABLE OF LEADING TO MEDICATION ERROR [None]
  - ABDOMINAL PAIN UPPER [None]
  - OFF LABEL USE [None]
